FAERS Safety Report 5429617-2 (Version None)
Quarter: 2007Q3

REPORT INFORMATION
  Report Type: 
  Country: None (occurrence: None)
  Receive Date: 20070824
  Receipt Date: 20070816
  Transmission Date: 20080115
  Serious: Yes (Death, Hospitalization)
  Sender: FDA-Public Use
  Company Number: 2007-03831

PATIENT
  Age: 79 Year
  Sex: Male

DRUGS (6)
  1. CEFUROXIME SODIUM [Suspect]
     Indication: ANTI-INFECTIVE THERAPY
     Dosage: 1500 MG, Q8H, INTRAVENOUS
     Route: 042
     Dates: start: 20060101, end: 20060101
  2. CEFOPERAZONE SODIUM [Suspect]
     Indication: ANTI-INFECTIVE THERAPY
     Dosage: INTRAVENOUS
     Route: 042
     Dates: start: 20060101, end: 20060101
  3. SULBACTAM(SULBACTAM) [Suspect]
     Indication: ANTI-INFECTIVE THERAPY
     Dosage: INTRAVENOUS
     Route: 042
     Dates: start: 20060101, end: 20060101
  4. AMIKIN [Suspect]
     Indication: ANTI-INFECTIVE THERAPY
     Dosage: INTRAVENOUS
     Route: 042
     Dates: start: 20060101, end: 20060101
  5. RIFATER [Suspect]
     Indication: PULMONARY TUBERCULOSIS
     Dosage: ORAL
     Route: 048
     Dates: start: 20060101, end: 20060101
  6. ETHAMBUTOL HYDROCHLORIDE [Suspect]
     Indication: PULMONARY TUBERCULOSIS
     Dosage: ORAL
     Route: 048
     Dates: start: 20060101, end: 20060101

REACTIONS (4)
  - ARTHRITIS FUNGAL [None]
  - CANDIDIASIS [None]
  - HAEMORRHAGE [None]
  - PULMONARY TUBERCULOSIS [None]
